FAERS Safety Report 9567095 (Version 1)
Quarter: 2013Q3

REPORT INFORMATION
  Report Type: Spontaneous
  Country: US (occurrence: US)
  Receive Date: 20130930
  Receipt Date: 20130930
  Transmission Date: 20140515
  Serious: No
  Sender: FDA-Public Use
  Company Number: US-AMGEN-USASP2012061692

PATIENT
  Age: 38 Year
  Sex: Female

DRUGS (1)
  1. ENBREL [Suspect]
     Indication: PSORIATIC ARTHROPATHY
     Dosage: 50 MG/ML, QWK
     Route: 058
     Dates: start: 201209

REACTIONS (3)
  - Injection site urticaria [Unknown]
  - Injection site warmth [Unknown]
  - Injection site reaction [Unknown]
